FAERS Safety Report 4561621-9 (Version None)
Quarter: 2005Q1

REPORT INFORMATION
  Report Type: 
  Country: None (occurrence: None)
  Receive Date: 20050126
  Receipt Date: 20050119
  Transmission Date: 20050727
  Serious: Yes (Other)
  Sender: FDA-Public Use
  Company Number: US-GLAXOSMITHKLINE-A0542041A

PATIENT
  Age: 59 Year
  Sex: Male

DRUGS (2)
  1. LAMICTAL [Suspect]
     Indication: EPILEPSY
     Route: 048
     Dates: start: 20040110, end: 20040501
  2. TEGRETOL [Concomitant]
     Indication: EPILEPSY

REACTIONS (11)
  - AMNESIA [None]
  - ANXIETY [None]
  - COUGH [None]
  - DRUG HYPERSENSITIVITY [None]
  - EMOTIONAL DISORDER [None]
  - FEAR [None]
  - GRAND MAL CONVULSION [None]
  - NECK PAIN [None]
  - RASH [None]
  - SOMNOLENCE [None]
  - VISUAL DISTURBANCE [None]
